FAERS Safety Report 8960852 (Version 1)
Quarter: 2012Q4

REPORT INFORMATION
  Report Type: Spontaneous
  Country: US (occurrence: None)
  Receive Date: 20121128
  Receipt Date: 20121128
  Transmission Date: 20130627
  Serious: Yes (Hospitalization, Other)
  Sender: FDA-Public Use
  Company Number: E2B_00000475

PATIENT
  Age: 51 Year
  Sex: Female
  Weight: 75.75 kg

DRUGS (3)
  1. LISINOPRIL [Suspect]
     Indication: HYPERTENSION
     Route: 048
  2. CARVEDILOL (COREG) (TABLETS) [Concomitant]
  3. HYDROCODONE BITARTRATE AND ACETAMINOPHEN (VICODIN) (TABLETS) [Concomitant]

REACTIONS (14)
  - Otorrhoea [None]
  - Ear discomfort [None]
  - Throat tightness [None]
  - Dysphagia [None]
  - Cough [None]
  - Increased upper airway secretion [None]
  - Dizziness [None]
  - Feeling abnormal [None]
  - Choking [None]
  - Panic attack [None]
  - Arterial occlusive disease [None]
  - Oedema peripheral [None]
  - Mass [None]
  - Rheumatoid arthritis [None]
